FAERS Safety Report 18895869 (Version 1)
Quarter: 2021Q1

REPORT INFORMATION
  Report Type: Spontaneous
  Country: DE (occurrence: DE)
  Receive Date: 20210216
  Receipt Date: 20210216
  Transmission Date: 20210420
  Serious: No
  Sender: FDA-Public Use
  Company Number: DE-ALKEM LABORATORIES LIMITED-DE-ALKEM-2020-08726

PATIENT
  Age: 67 Year
  Sex: Male

DRUGS (3)
  1. URBASON [Suspect]
     Active Substance: METHYLPREDNISOLONE
     Indication: PRODUCT USED FOR UNKNOWN INDICATION
     Dosage: 1 G, DAILY (CYCLE 1 OF STERIOID PULSE THERAPY)
     Route: 042
     Dates: start: 201910
  2. URBASON [Suspect]
     Active Substance: METHYLPREDNISOLONE
     Dosage: 1 G, DAILY (CYCLE 2 OF STEROID PULSE THERAPY)
     Route: 042
     Dates: start: 201912
  3. PREGABALIN. [Suspect]
     Active Substance: PREGABALIN
     Indication: NEUROPATHY PERIPHERAL
     Dosage: UNK
     Route: 065

REACTIONS (2)
  - Diarrhoea [Unknown]
  - Temperature perception test abnormal [Unknown]

NARRATIVE: CASE EVENT DATE: 201912
